FAERS Safety Report 19270176 (Version 1)
Quarter: 2021Q2

REPORT INFORMATION
  Report Type: Spontaneous
  Country: US (occurrence: US)
  Receive Date: 20210518
  Receipt Date: 20210518
  Transmission Date: 20210717
  Serious: Yes (Other)
  Sender: FDA-Public Use
  Company Number: US-ASTRAZENECA-2021A417889

PATIENT

DRUGS (2)
  1. NEXIUM 24HR [Suspect]
     Active Substance: ESOMEPRAZOLE MAGNESIUM
     Route: 048
  2. PRILOSEC OTC [Suspect]
     Active Substance: OMEPRAZOLE MAGNESIUM
     Route: 048

REACTIONS (6)
  - Drug dependence [Unknown]
  - Pain [Unknown]
  - Rebound effect [Unknown]
  - Metastatic gastric cancer [Unknown]
  - Rebound acid hypersecretion [Unknown]
  - Hyperchlorhydria [Unknown]
